FAERS Safety Report 16940179 (Version 1)
Quarter: 2019Q4

REPORT INFORMATION
  Report Type: Spontaneous
  Country: DE (occurrence: DE)
  Receive Date: 20191021
  Receipt Date: 20191021
  Transmission Date: 20200122
  Serious: Yes (Death)
  Sender: FDA-Public Use
  Company Number: DE-009507513-1910DEU010359

PATIENT
  Age: 52 Year
  Sex: Male

DRUGS (3)
  1. PEMETREXED DISODIUM [Concomitant]
     Active Substance: PEMETREXED DISODIUM
     Indication: METASTATIC BRONCHIAL CARCINOMA
     Dosage: UNK
     Route: 042
     Dates: start: 201905, end: 201908
  2. CISPLATIN. [Concomitant]
     Active Substance: CISPLATIN
     Indication: METASTATIC BRONCHIAL CARCINOMA
     Dosage: UNK
     Route: 042
     Dates: start: 201905, end: 201908
  3. PEMBROLIZUMAB. [Suspect]
     Active Substance: PEMBROLIZUMAB
     Indication: METASTATIC BRONCHIAL CARCINOMA
     Dosage: UNK
     Route: 042
     Dates: start: 201905, end: 201908

REACTIONS (2)
  - Acute hepatic failure [Fatal]
  - Autoimmune hepatitis [Fatal]

NARRATIVE: CASE EVENT DATE: 20190828
